FAERS Safety Report 9198789 (Version 1)
Quarter: 2013Q1

REPORT INFORMATION
  Report Type: Spontaneous
  Country: US (occurrence: US)
  Receive Date: 20130329
  Receipt Date: 20130329
  Transmission Date: 20140127
  Serious: Yes (Other)
  Sender: FDA-Public Use
  Company Number: US-GENZYME-CERZ-1002869

PATIENT
  Sex: Male

DRUGS (1)
  1. CEREZYME [Suspect]
     Indication: GAUCHER^S DISEASE
     Dosage: 3200 U, Q2W
     Route: 042
     Dates: start: 19920501

REACTIONS (2)
  - Hip fracture [Recovered/Resolved]
  - Arthropathy [Recovered/Resolved]
